FAERS Safety Report 21358344 (Version 1)
Quarter: 2022Q3

REPORT INFORMATION
  Report Type: Spontaneous
  Country: BR (occurrence: BR)
  Receive Date: 20220921
  Receipt Date: 20220921
  Transmission Date: 20221026
  Serious: Yes (Hospitalization, Other)
  Sender: FDA-Public Use
  Company Number: BR-BRISTOL-MYERS SQUIBB COMPANY-2022-108750

PATIENT
  Age: 64 Year
  Sex: Male

DRUGS (1)
  1. ELIQUIS [Suspect]
     Active Substance: APIXABAN
     Indication: Heart valve replacement
     Route: 065

REACTIONS (3)
  - Thrombosis [Unknown]
  - Acute pulmonary oedema [Unknown]
  - Intentional product use issue [Unknown]
